FAERS Safety Report 7819780-8 (Version None)
Quarter: 2011Q4

REPORT INFORMATION
  Report Type: 
  Country: None (occurrence: None)
  Receive Date: 20111018
  Receipt Date: 20101119
  Transmission Date: 20120403
  Serious: No
  Sender: FDA-Public Use
  Company Number: US-ASTRAZENECA-2010SE55423

PATIENT
  Age: 41 Year
  Sex: Female
  Weight: 79.8 kg

DRUGS (2)
  1. PROVENTIL [Concomitant]
     Route: 055
  2. SYMBICORT [Suspect]
     Indication: ASTHMA
     Dosage: 160 UG BID
     Route: 055

REACTIONS (1)
  - DYSPNOEA [None]
